FAERS Safety Report 18936410 (Version 2)
Quarter: 2021Q1

REPORT INFORMATION
  Report Type: Spontaneous
  Country: BE (occurrence: BE)
  Receive Date: 20210225
  Receipt Date: 20210309
  Transmission Date: 20210420
  Serious: Yes (Death, Life-Threatening, Other)
  Sender: FDA-Public Use
  Company Number: BE-SA-2020SA344744

PATIENT
  Age: 57 Year
  Sex: Male
  Weight: 112 kg

DRUGS (1)
  1. CABLIVI [Suspect]
     Active Substance: CAPLACIZUMAB-YHDP
     Indication: THROMBOTIC THROMBOCYTOPENIC PURPURA
     Dosage: 10 MG, TWICE THE FIRST DAY (IV AND SC) THEN ONCE A DAY
     Route: 042
     Dates: start: 20201128, end: 20201128

REACTIONS (6)
  - Air embolism [Fatal]
  - Transfusion-related acute lung injury [Fatal]
  - Acute respiratory failure [Fatal]
  - Vasoplegia syndrome [Fatal]
  - Cardiac arrest [Fatal]
  - Haemoperitoneum [Unknown]

NARRATIVE: CASE EVENT DATE: 20201129
